FAERS Safety Report 10026079 (Version 1)
Quarter: 2014Q1

REPORT INFORMATION
  Report Type: Spontaneous
  Country: JP (occurrence: JP)
  Receive Date: 20140320
  Receipt Date: 20140320
  Transmission Date: 20141002
  Serious: Yes (Life-Threatening, Hospitalization)
  Sender: FDA-Public Use
  Company Number: JP-MYLANLABS-2014S1005396

PATIENT
  Age: 32 Year
  Sex: Male
  Weight: 78 kg

DRUGS (4)
  1. MIDAZOLAM [Suspect]
     Indication: INDUCTION OF ANAESTHESIA
     Route: 042
  2. ROCURONIUM BROMIDE [Suspect]
     Indication: INDUCTION OF ANAESTHESIA
     Route: 042
  3. THIOPENTAL SODIUM [Suspect]
     Indication: INDUCTION OF ANAESTHESIA
     Route: 042
  4. WARFARIN [Concomitant]
     Route: 065

REACTIONS (2)
  - Circulatory collapse [Recovered/Resolved]
  - Hypoxia [Recovered/Resolved]
